FAERS Safety Report 19595380 (Version 1)
Quarter: 2021Q3

REPORT INFORMATION
  Report Type: Spontaneous
  Country: US (occurrence: US)
  Receive Date: 20210722
  Receipt Date: 20210722
  Transmission Date: 20211014
  Serious: No
  Sender: FDA-Public Use
  Company Number: US-PFIZER INC-2021884269

PATIENT
  Age: 45 Year
  Sex: Female

DRUGS (2)
  1. EXCEDRIN [CAFFEINE;PARACETAMOL] [Concomitant]
     Active Substance: ACETAMINOPHEN\CAFFEINE
     Dosage: UNK
  2. XELJANZ [Suspect]
     Active Substance: TOFACITINIB CITRATE
     Indication: RHEUMATOID ARTHRITIS
     Dosage: 5 MG, TWICE A DAY
     Route: 048
     Dates: start: 202011, end: 20210708

REACTIONS (3)
  - Hepatic enzyme increased [Unknown]
  - Hepatomegaly [Unknown]
  - Abdominal pain [Unknown]

NARRATIVE: CASE EVENT DATE: 202107
